FAERS Safety Report 24593042 (Version 1)
Quarter: 2024Q4

REPORT INFORMATION
  Report Type: Spontaneous
  Country: US (occurrence: None)
  Receive Date: 20241107
  Receipt Date: 20241107
  Transmission Date: 20250114
  Serious: Yes (Hospitalization)
  Sender: Public
  Company Number: None

PATIENT
  Age: 67 Year
  Sex: Male
  Weight: 90 kg

DRUGS (2)
  1. BUMETANIDE [Suspect]
     Active Substance: BUMETANIDE
     Indication: Cardiac failure congestive
     Dosage: FREQUENCY : TWICE A DAY;?
     Route: 042
  2. METOLAZONE [Suspect]
     Active Substance: METOLAZONE

REACTIONS (4)
  - Acute kidney injury [None]
  - Dyspnoea [None]
  - Respiratory failure [None]
  - Cardiac failure [None]

NARRATIVE: CASE EVENT DATE: 20240608
